FAERS Safety Report 25683393 (Version 5)
Quarter: 2025Q4

REPORT INFORMATION
  Report Type: Spontaneous
  Country: US (occurrence: US)
  Receive Date: 20250814
  Receipt Date: 20251212
  Transmission Date: 20260118
  Serious: Yes (Other)
  Sender: SANOFI AVENTIS
  Company Number: US-SA-2025SA236262

PATIENT
  Age: 20 Year
  Sex: Male

DRUGS (7)
  1. ALTUVIIIO [Suspect]
     Active Substance: EFANESOCTOCOG ALFA
     Indication: Factor VIII deficiency
     Dosage: 4000 IU, QW
     Route: 042
     Dates: start: 202409
  2. ALTUVIIIO [Suspect]
     Active Substance: EFANESOCTOCOG ALFA
     Indication: Haemorrhage prophylaxis
     Dosage: 4000 IU, PRN
     Route: 042
     Dates: start: 202409
  3. ALTUVIIIO [Suspect]
     Active Substance: EFANESOCTOCOG ALFA
     Dosage: 4000 IU, QOW
     Route: 042
     Dates: start: 202409
  4. ALTUVIIIO [Suspect]
     Active Substance: EFANESOCTOCOG ALFA
     Dosage: 4000 IU, QOW
     Route: 042
     Dates: start: 20250428
  5. ALTUVIIIO [Suspect]
     Active Substance: EFANESOCTOCOG ALFA
     Dosage: 4000 IU, QW
     Route: 042
     Dates: start: 20250428
  6. ALTUVIIIO [Suspect]
     Active Substance: EFANESOCTOCOG ALFA
     Dosage: 4000 IU, PRN (EVERY 48 HOURS AS NEEDED FOR BREAKTHROUGH BLEEDS)
     Route: 042
     Dates: start: 20250428
  7. ALTUVIIIO [Suspect]
     Active Substance: EFANESOCTOCOG ALFA
     Dosage: 4000 IU, Q5D
     Route: 042
     Dates: start: 2025

REACTIONS (3)
  - Muscle haemorrhage [Unknown]
  - Haemorrhage [Unknown]
  - Haemorrhage [Unknown]

NARRATIVE: CASE EVENT DATE: 20250101
